FAERS Safety Report 6730163-4 (Version None)
Quarter: 2010Q2

REPORT INFORMATION
  Report Type: 
  Country: None (occurrence: None)
  Receive Date: 20100513
  Receipt Date: 20100506
  Transmission Date: 20101027
  Serious: Yes (Hospitalization)
  Sender: FDA-Public Use
  Company Number: 99485

PATIENT
  Age: 44 Year
  Sex: Male

DRUGS (4)
  1. CISPLATIN [Suspect]
     Indication: SARCOMA
     Dosage: 30 MG/M2 IV
     Route: 042
  2. CISPLATIN [Suspect]
     Indication: SOFT TISSUE DISORDER
     Dosage: 30 MG/M2 IV
     Route: 042
  3. DACARBAZINE FOR INJ. USP 200MG [Suspect]
     Indication: SARCOMA
     Dosage: 400 MG/M2 IV
     Route: 042
  4. DACARBAZINE FOR INJ. USP 200MG [Suspect]
     Indication: SOFT TISSUE DISORDER
     Dosage: 400 MG/M2 IV
     Route: 042

REACTIONS (8)
  - BLOOD LACTATE DEHYDROGENASE INCREASED [None]
  - CHEST DISCOMFORT [None]
  - DYSPNOEA [None]
  - OLIGURIA [None]
  - PALPITATIONS [None]
  - RENAL FAILURE ACUTE [None]
  - SOMNOLENCE [None]
  - TUMOUR LYSIS SYNDROME [None]
